FAERS Safety Report 5836981-9 (Version None)
Quarter: 2008Q3

REPORT INFORMATION
  Report Type: 
  Country: None (occurrence: None)
  Receive Date: 20080805
  Receipt Date: 20080723
  Transmission Date: 20090109
  Serious: Yes (Hospitalization)
  Sender: FDA-Public Use
  Company Number: 20085425

PATIENT
  Sex: Male

DRUGS (1)
  1. LIORESAL [Suspect]
     Indication: MUSCLE SPASTICITY
     Dosage: DAILY, INTRATHECAL
     Route: 037

REACTIONS (6)
  - AGITATION [None]
  - CATHETER RELATED COMPLICATION [None]
  - DECUBITUS ULCER [None]
  - MUSCLE SPASTICITY [None]
  - THERAPEUTIC RESPONSE UNEXPECTED [None]
  - TONGUE BITING [None]
